FAERS Safety Report 13135779 (Version 2)
Quarter: 2017Q1

REPORT INFORMATION
  Report Type: Report from Study
  Country: US (occurrence: US)
  Receive Date: 20170120
  Receipt Date: 20170317
  Transmission Date: 20170428
  Serious: Yes (Hospitalization, Other)
  Sender: FDA-Public Use
  Company Number: US-ACTELION-A-US2017-148467

PATIENT
  Age: 63 Year
  Sex: Female
  Weight: 106.58 kg

DRUGS (2)
  1. WARFARIN [Concomitant]
     Active Substance: WARFARIN
  2. OPSUMIT [Suspect]
     Active Substance: MACITENTAN
     Indication: PULMONARY ARTERIAL HYPERTENSION
     Dosage: 10 MG, QD
     Route: 048
     Dates: start: 20140425

REACTIONS (10)
  - Vomiting [Unknown]
  - Pleural effusion [Unknown]
  - Diarrhoea [Unknown]
  - Hepatic failure [Unknown]
  - Pneumothorax [Unknown]
  - Dizziness [Unknown]
  - Fluid retention [Unknown]
  - Nausea [Unknown]
  - Cardiac failure chronic [Unknown]
  - Syncope [Unknown]

NARRATIVE: CASE EVENT DATE: 201701
